FAERS Safety Report 23453375 (Version 8)
Quarter: 2024Q1

REPORT INFORMATION
  Report Type: Spontaneous
  Country: CA (occurrence: CA)
  Receive Date: 20240129
  Receipt Date: 20240314
  Transmission Date: 20240410
  Serious: Yes (Hospitalization, Other)
  Sender: FDA-Public Use
  Company Number: CA-PFIZER INC-202201095080

PATIENT
  Age: 44 Year
  Sex: Female

DRUGS (10)
  1. RUXIENCE [Suspect]
     Active Substance: RITUXIMAB-PVVR
     Indication: Systemic lupus erythematosus
     Dosage: 1000 MG DAY 1 AND DAY 15
     Route: 042
     Dates: start: 20221003
  2. RUXIENCE [Suspect]
     Active Substance: RITUXIMAB-PVVR
     Indication: Nephritis
     Dosage: 1000 MG DAY 1 AND DAY 15
     Route: 042
     Dates: start: 20221018
  3. RUXIENCE [Suspect]
     Active Substance: RITUXIMAB-PVVR
     Dosage: 1000 MG DAY 1 AND DAY 15(1000MG, DAY 1 OF RETREATMENT)
     Route: 042
     Dates: start: 20240301
  4. ACETAMINOPHEN [Concomitant]
     Active Substance: ACETAMINOPHEN
     Indication: Premedication
     Dosage: UNK
     Dates: start: 20221003, end: 20221003
  5. DIPHENHYDRAMINE [Concomitant]
     Active Substance: DIPHENHYDRAMINE
     Indication: Premedication
     Dosage: UNK
     Dates: start: 20221003, end: 20221003
  6. METHYLPREDNISOLONE [Concomitant]
     Active Substance: METHYLPREDNISOLONE
     Indication: Premedication
     Dosage: 100 MG
     Route: 042
     Dates: start: 20221003, end: 20221003
  7. PREDNISONE [Concomitant]
     Active Substance: PREDNISONE
     Dosage: UNK
     Dates: end: 2016
  8. PREDNISONE [Concomitant]
     Active Substance: PREDNISONE
     Dosage: 30 MG
  9. PREDNISONE [Concomitant]
     Active Substance: PREDNISONE
     Dosage: 20 MG, 1X/DAY
     Dates: start: 20221003
  10. SULFATRIM [Concomitant]
     Active Substance: SULFAMETHOXAZOLE\TRIMETHOPRIM
     Indication: Infection prophylaxis
     Dosage: UNK, THREE TIMES A WEEK

REACTIONS (25)
  - Deep vein thrombosis [Recovering/Resolving]
  - Haematoma [Recovering/Resolving]
  - Ascites [Recovering/Resolving]
  - Pneumonia bacterial [Recovering/Resolving]
  - Dyspnoea [Not Recovered/Not Resolved]
  - Abdominal distension [Unknown]
  - Bacterial infection [Recovering/Resolving]
  - Renal disorder [Not Recovered/Not Resolved]
  - Dizziness [Not Recovered/Not Resolved]
  - Fluid retention [Recovering/Resolving]
  - Blood pressure increased [Not Recovered/Not Resolved]
  - Anxiety [Unknown]
  - Flushing [Unknown]
  - Infusion related reaction [Unknown]
  - Headache [Recovering/Resolving]
  - Nausea [Recovered/Resolved with Sequelae]
  - Vertigo [Unknown]
  - Fatigue [Recovering/Resolving]
  - Malaise [Not Recovered/Not Resolved]
  - Cough [Unknown]
  - Laryngitis [Not Recovered/Not Resolved]
  - Chest discomfort [Not Recovered/Not Resolved]
  - Palpitations [Recovered/Resolved]
  - Dehydration [Unknown]
  - Off label use [Unknown]

NARRATIVE: CASE EVENT DATE: 20221003
